FAERS Safety Report 13046039 (Version 1)
Quarter: 2016Q4

REPORT INFORMATION
  Report Type: Spontaneous
  Country: US (occurrence: US)
  Receive Date: 20161220
  Receipt Date: 20161220
  Transmission Date: 20170207
  Serious: Yes (Other)
  Sender: FDA-Public Use
  Company Number: US-ELI_LILLY_AND_COMPANY-US201607009493

PATIENT
  Sex: Female

DRUGS (6)
  1. CYMBALTA [Suspect]
     Active Substance: DULOXETINE HYDROCHLORIDE
     Dosage: 90 MG, QD
     Route: 065
     Dates: start: 20150306
  2. CYMBALTA [Suspect]
     Active Substance: DULOXETINE HYDROCHLORIDE
     Indication: ANXIETY
     Dosage: 60 MG, QD
     Route: 065
  3. CYMBALTA [Suspect]
     Active Substance: DULOXETINE HYDROCHLORIDE
     Dosage: 90 MG, QD
     Route: 065
  4. CYMBALTA [Suspect]
     Active Substance: DULOXETINE HYDROCHLORIDE
     Dosage: 60 MG, QD
     Dates: end: 201508
  5. CYMBALTA [Suspect]
     Active Substance: DULOXETINE HYDROCHLORIDE
     Indication: DEPRESSED MOOD
     Dosage: 120 MG, QD
     Route: 065
     Dates: start: 20150306
  6. CYMBALTA [Suspect]
     Active Substance: DULOXETINE HYDROCHLORIDE
     Indication: PANIC DISORDER
     Dosage: 90 MG, QD
     Route: 065
     Dates: start: 20140623

REACTIONS (18)
  - Suicidal ideation [Unknown]
  - Depressed mood [Unknown]
  - Lethargy [Unknown]
  - Hypomania [Unknown]
  - Tremor [Unknown]
  - Asthenia [Unknown]
  - Sleep disorder [Unknown]
  - Irritability [Unknown]
  - Confusional state [Unknown]
  - Fatigue [Unknown]
  - Headache [Unknown]
  - Affect lability [Unknown]
  - Drug withdrawal syndrome [Unknown]
  - Agitation [Unknown]
  - Anxiety [Unknown]
  - Dizziness [Unknown]
  - Anhedonia [Unknown]
  - Dyspnoea [Unknown]
